FAERS Safety Report 5261462-3 (Version None)
Quarter: 2007Q1

REPORT INFORMATION
  Report Type: 
  Country: None (occurrence: None)
  Receive Date: 20061218
  Receipt Date: 20060829
  Transmission Date: 20070707
  Serious: No
  Sender: FDA-Public Use
  Company Number: US200608006697

PATIENT
  Age: 67 Year
  Sex: Male

DRUGS (15)
  1. CIALIS [Suspect]
     Indication: ERECTILE DYSFUNCTION
     Dosage: 20 MG
     Dates: start: 20040101
  2. CYMBALTA [Concomitant]
  3. TOPROL-XL [Concomitant]
  4. ASPIRIN [Concomitant]
  5. BUPTOPION (BUPROPION) [Concomitant]
  6. EXELON /SCH/ (RIVASTIGMINE TARTRATE) [Concomitant]
  7. MEMANTINE HCL [Concomitant]
  8. LISINOPRIL [Concomitant]
  9. ACTONEL /USA/ (RISEDRONATE SODIUM) [Concomitant]
  10. CELEBREX /UNK/ (CELECOXIB) [Concomitant]
  11. FLOMAX [Concomitant]
  12. OCUVITE (ASCORBIC ACID, RETINOL, TOCOPHEROL) [Concomitant]
  13. GLUCOSAMINE (GLUCOSAMINE) [Concomitant]
  14. OMEGA-3 (OMEGA-3 TRIGLYCERIDES) [Concomitant]
  15. ETODOLAC [Concomitant]

REACTIONS (1)
  - DRUG INEFFECTIVE [None]
